FAERS Safety Report 18556980 (Version 6)
Quarter: 2021Q1

REPORT INFORMATION
  Report Type: Spontaneous
  Country: US (occurrence: US)
  Receive Date: 20201129
  Receipt Date: 20210317
  Transmission Date: 20210419
  Serious: No
  Sender: FDA-Public Use
  Company Number: US-GLAXOSMITHKLINE-US2020AMR230415

PATIENT
  Sex: Female

DRUGS (5)
  1. ZEJULA [Suspect]
     Active Substance: NIRAPARIB
     Dosage: 300 MG, QD
     Route: 065
  2. ZEJULA [Suspect]
     Active Substance: NIRAPARIB
     Indication: OVARIAN CANCER
     Dosage: 300 MG, QD
     Route: 048
     Dates: start: 20201112
  3. ZEJULA [Suspect]
     Active Substance: NIRAPARIB
     Dosage: 300 MG, QD
  4. ZEJULA [Suspect]
     Active Substance: NIRAPARIB
     Dosage: 200 MG, QD
     Route: 048
     Dates: start: 20210125
  5. ZEJULA [Suspect]
     Active Substance: NIRAPARIB
     Dosage: 300 MG, QD
     Dates: start: 20210301

REACTIONS (11)
  - Red blood cell count decreased [Unknown]
  - Lymphocyte count increased [Unknown]
  - Cyst [Unknown]
  - Dizziness [Unknown]
  - Nausea [Recovering/Resolving]
  - Vomiting [Unknown]
  - Platelet count decreased [Unknown]
  - Asthenia [Unknown]
  - Product dose omission issue [Recovered/Resolved]
  - Mean cell volume increased [Unknown]
  - Brain scan abnormal [Unknown]
